FAERS Safety Report 17223617 (Version 2)
Quarter: 2020Q1

REPORT INFORMATION
  Report Type: Spontaneous
  Country: US (occurrence: US)
  Receive Date: 20200102
  Receipt Date: 20200108
  Transmission Date: 20200409
  Serious: No
  Sender: FDA-Public Use
  Company Number: US-GLAXOSMITHKLINE-US2019AMR237670

PATIENT
  Age: 37 Year
  Sex: Female

DRUGS (1)
  1. NUCALA [Suspect]
     Active Substance: MEPOLIZUMAB
     Indication: ASTHMA
     Dosage: 100 MG
     Route: 065
     Dates: start: 20181231

REACTIONS (3)
  - Asthma [Unknown]
  - Hypoaesthesia [Unknown]
  - Product dose omission [Unknown]

NARRATIVE: CASE EVENT DATE: 201911
